FAERS Safety Report 8027429-7 (Version None)
Quarter: 2012Q1

REPORT INFORMATION
  Report Type: 
  Country: None (occurrence: None)
  Receive Date: 20120106
  Receipt Date: 20111227
  Transmission Date: 20120608
  Serious: Yes (Death)
  Sender: FDA-Public Use
  Company Number: US-JNJFOC-20111212346

PATIENT
  Age: 31 Year
  Sex: Male

DRUGS (6)
  1. DIPHENHYDRAMINE HCL [Suspect]
     Route: 048
  2. SALICYLATES NOS [Suspect]
     Indication: PRODUCT USED FOR UNKNOWN INDICATION
  3. DIPHENHYDRAMINE HCL [Suspect]
     Indication: SUICIDE ATTEMPT
     Route: 048
  4. FAMOTIDINE [Suspect]
     Route: 048
  5. FAMOTIDINE [Suspect]
     Indication: SUICIDE ATTEMPT
     Route: 048
  6. DOXYLAMINE [Suspect]
     Indication: PRODUCT USED FOR UNKNOWN INDICATION

REACTIONS (1)
  - TOXICITY TO VARIOUS AGENTS [None]
